FAERS Safety Report 9020813 (Version 1)
Quarter: 2013Q1

REPORT INFORMATION
  Report Type: Spontaneous
  Country: US (occurrence: US)
  Receive Date: 20130119
  Receipt Date: 20130119
  Transmission Date: 20140127
  Serious: No
  Sender: FDA-Public Use
  Company Number: US-ALLERGAN-1205886US

PATIENT
  Sex: 0

DRUGS (1)
  1. BOTOX? [Suspect]
     Indication: PRODUCT USED FOR UNKNOWN INDICATION
     Dosage: 155 UNITS/31 SITES
     Route: 030

REACTIONS (3)
  - Asthenia [Unknown]
  - Neck pain [Unknown]
  - Muscular weakness [Unknown]
